FAERS Safety Report 23438551 (Version 1)
Quarter: 2024Q1

REPORT INFORMATION
  Report Type: Spontaneous
  Country: US (occurrence: None)
  Receive Date: 20240124
  Receipt Date: 20240124
  Transmission Date: 20240409
  Serious: Yes (Hospitalization)
  Sender: FDA-Public Use
  Company Number: 2024A017144

PATIENT
  Sex: Female
  Weight: 43.1 kg

DRUGS (1)
  1. CALQUENCE [Suspect]
     Active Substance: ACALABRUTINIB
     Indication: Chronic lymphocytic leukaemia
     Route: 048

REACTIONS (11)
  - Anxiety [Unknown]
  - Stress [Unknown]
  - Weight decreased [Unknown]
  - Urticaria [Unknown]
  - Drug hypersensitivity [Unknown]
  - Alopecia [Unknown]
  - Drug intolerance [Unknown]
  - Chest discomfort [Unknown]
  - Stomatitis [Unknown]
  - Therapeutic product effect decreased [Unknown]
  - Extra dose administered [Unknown]
